FAERS Safety Report 8221831-6 (Version None)
Quarter: 2012Q1

REPORT INFORMATION
  Report Type: 
  Country: None (occurrence: None)
  Receive Date: 20120307
  Receipt Date: 20101105
  Transmission Date: 20120608
  Serious: Yes (Other)
  Sender: FDA-Public Use
  Company Number: PHHY2010US75451

PATIENT
  Age: 66 Year
  Sex: Male

DRUGS (1)
  1. AFINITOR [Suspect]
     Indication: RENAL CANCER METASTATIC
     Dosage: ORAL
     Route: 048

REACTIONS (1)
  - NEOPLASM MALIGNANT [None]
